FAERS Safety Report 8877638 (Version 1)
Quarter: 2012Q4

REPORT INFORMATION
  Report Type: Spontaneous
  Country: US (occurrence: None)
  Receive Date: 20121031
  Receipt Date: 20121031
  Transmission Date: 20130627
  Serious: No
  Sender: FDA-Public Use
  Company Number: None

PATIENT
  Sex: Female

DRUGS (4)
  1. FLUOXETINE 20 MG, CAP [Suspect]
     Indication: ANXIETY
     Route: 048
     Dates: start: 2001
  2. FLUOXETINE 20 MG, CAP [Suspect]
     Indication: DEPRESSION
     Route: 048
     Dates: start: 2001
  3. FLUOXETINE 20 MG, CAP [Suspect]
     Indication: ANXIETY
     Route: 048
     Dates: start: 2001
  4. FLUOXETINE 20 MG, CAP [Suspect]
     Indication: DEPRESSION
     Route: 048
     Dates: start: 2001

REACTIONS (2)
  - Migraine [None]
  - Product substitution issue [None]
